FAERS Safety Report 23949758 (Version 1)
Quarter: 2024Q2

REPORT INFORMATION
  Report Type: Spontaneous
  Country: BR (occurrence: BR)
  Receive Date: 20240607
  Receipt Date: 20240607
  Transmission Date: 20240715
  Serious: Yes (Other)
  Sender: FDA-Public Use
  Company Number: BR-DSJP-DSE-2024-125096

PATIENT
  Age: 38 Year
  Sex: Female

DRUGS (1)
  1. ENHERTU [Suspect]
     Active Substance: FAM-TRASTUZUMAB DERUXTECAN-NXKI
     Indication: Human epidermal growth factor receptor positive
     Dosage: UNK, (CURRENTLY IN THE 10TH CYCLE)
     Route: 065

REACTIONS (3)
  - Seizure [Recovering/Resolving]
  - Paralysis [Recovering/Resolving]
  - Radiation necrosis [Recovering/Resolving]

NARRATIVE: CASE EVENT DATE: 20240501
